FAERS Safety Report 9601765 (Version 1)
Quarter: 2013Q4

REPORT INFORMATION
  Report Type: Spontaneous
  Country: AU (occurrence: None)
  Receive Date: 20131002
  Receipt Date: 20131002
  Transmission Date: 20140711
  Serious: Yes (Other)
  Sender: FDA-Public Use
  Company Number: NSR_01255_2013

PATIENT
  Age: 56 Year
  Sex: Female

DRUGS (2)
  1. LAMOTRIGINE (LAMOTRIGINE) [Suspect]
     Indication: EPILEPSY
     Dosage: (DF) , (200 MG I MANE AND I I NOCTE) UNKNOWN UNTIL NOT CONTINUING)?
  2. LAMOTRIGINE (LAMOTRIGINE) [Suspect]
     Indication: CONVULSION
     Dosage: (DF) , (200 MG I MANE AND I I NOCTE) UNKNOWN UNTIL NOT CONTINUING)?

REACTIONS (1)
  - Pathological gambling [None]
